FAERS Safety Report 4746060-X (Version None)
Quarter: 2005Q3

REPORT INFORMATION
  Report Type: 
  Country: None (occurrence: None)
  Receive Date: 20050816
  Receipt Date: 20050804
  Transmission Date: 20060218
  Serious: Yes (Death, Life-Threatening)
  Sender: FDA-Public Use
  Company Number: JP-JNJFOC-20050603747

PATIENT
  Sex: Male
  Weight: 40 kg

DRUGS (10)
  1. CRAVIT [Suspect]
     Indication: PNEUMONIA
     Route: 048
     Dates: start: 20050426, end: 20050502
  2. OMEPRAZOLE [Suspect]
     Route: 048
  3. OMEPRAZOLE [Suspect]
     Route: 048
  4. OMEPRAZOLE [Suspect]
     Indication: DRUG USE FOR UNKNOWN INDICATION
     Route: 048
  5. BASEN [Concomitant]
     Dosage: 3 TABLETS
     Route: 048
     Dates: start: 20050428, end: 20050509
  6. GANATON [Concomitant]
     Route: 048
     Dates: start: 20050425, end: 20050509
  7. KALIMATE [Concomitant]
     Route: 048
     Dates: start: 20050421, end: 20050429
  8. FLORINEF [Concomitant]
     Route: 048
     Dates: start: 20050425, end: 20050509
  9. PERSANTIN-L [Concomitant]
     Route: 048
  10. MUCOSOLVAN [Concomitant]
     Route: 048

REACTIONS (8)
  - BLOOD SODIUM DECREASED [None]
  - CARDIAC FAILURE [None]
  - DISSEMINATED INTRAVASCULAR COAGULATION [None]
  - HAEMOGLOBIN DECREASED [None]
  - MULTI-ORGAN FAILURE [None]
  - PLATELET COUNT DECREASED [None]
  - PNEUMONIA [None]
  - TOXIC EPIDERMAL NECROLYSIS [None]
